FAERS Safety Report 6581616-3 (Version None)
Quarter: 2010Q1

REPORT INFORMATION
  Report Type: 
  Country: None (occurrence: None)
  Receive Date: 20100215
  Receipt Date: 20100204
  Transmission Date: 20100710
  Serious: Yes (Other)
  Sender: FDA-Public Use
  Company Number: GB-AMGEN-QUU390766

PATIENT
  Sex: Male
  Weight: 77 kg

DRUGS (9)
  1. ARANESP [Suspect]
     Indication: RENAL FAILURE CHRONIC
  2. RAMIPRIL [Suspect]
     Route: 048
     Dates: start: 20071128, end: 20100203
  3. ATORVASTATIN [Concomitant]
     Route: 048
     Dates: start: 20040225
  4. RANITIDINE [Concomitant]
     Route: 048
     Dates: start: 20091019
  5. THALIDOMIDE [Concomitant]
     Route: 048
     Dates: start: 20080124, end: 20080515
  6. CYCLOPHOSPHAMIDE [Concomitant]
     Route: 048
     Dates: start: 20080124, end: 20080515
  7. WARFARIN [Concomitant]
     Route: 048
     Dates: start: 20080124, end: 20090907
  8. DEXAMETHASONE [Concomitant]
  9. 5-FU [Concomitant]

REACTIONS (4)
  - BLOOD PRODUCT TRANSFUSION DEPENDENT [None]
  - BONE MARROW FAILURE [None]
  - CONDITION AGGRAVATED [None]
  - PANCYTOPENIA [None]
